FAERS Safety Report 15075724 (Version 3)
Quarter: 2020Q1

REPORT INFORMATION
  Report Type: Spontaneous
  Country: US (occurrence: US)
  Receive Date: 20180627
  Receipt Date: 20200326
  Transmission Date: 20200409
  Serious: No
  Sender: FDA-Public Use
  Company Number: US-SA-2018SA167663

PATIENT
  Age: 39 Year
  Sex: Female

DRUGS (1)
  1. AUBAGIO [Suspect]
     Active Substance: TERIFLUNOMIDE
     Indication: PRODUCT USE IN UNAPPROVED INDICATION
     Dosage: 1 DF, QD
     Route: 048
     Dates: start: 20171110, end: 202002

REACTIONS (2)
  - Paraesthesia [Unknown]
  - Product dose omission [Unknown]
